FAERS Safety Report 9246878 (Version 1)
Quarter: 2013Q2

REPORT INFORMATION
  Report Type: Spontaneous
  Country: CO (occurrence: CO)
  Receive Date: 20130422
  Receipt Date: 20130422
  Transmission Date: 20140414
  Serious: Yes (Hospitalization)
  Sender: FDA-Public Use
  Company Number: CO-GLAXOSMITHKLINE-A1020825A

PATIENT
  Sex: Female

DRUGS (1)
  1. VOTRIENT [Suspect]
     Indication: PRODUCT USED FOR UNKNOWN INDICATION
     Dosage: 800MG PER DAY

REACTIONS (2)
  - Pulmonary haemorrhage [Unknown]
  - Disease progression [Unknown]
